FAERS Safety Report 7681173-4 (Version None)
Quarter: 2011Q3

REPORT INFORMATION
  Report Type: 
  Country: None (occurrence: None)
  Receive Date: 20110812
  Receipt Date: 20110812
  Transmission Date: 20111222
  Serious: Yes (Other)
  Sender: FDA-Public Use
  Company Number: CH-BAYER-2011-071895

PATIENT
  Age: 32 Year
  Sex: Female

DRUGS (2)
  1. MEFENAMIC ACID [Concomitant]
     Dosage: UNK
     Dates: start: 20100701, end: 20100701
  2. CIPROFLAXACIN [Suspect]
     Dosage: 500 MG, BID
     Route: 048
     Dates: start: 20100715, end: 20100725

REACTIONS (2)
  - ABORTION INDUCED [None]
  - NO ADVERSE EVENT [None]
